FAERS Safety Report 18461348 (Version 3)
Quarter: 2021Q1

REPORT INFORMATION
  Report Type: Spontaneous
  Country: DE (occurrence: DE)
  Receive Date: 20201104
  Receipt Date: 20210329
  Transmission Date: 20210419
  Serious: Yes (Hospitalization, Disabling, Other)
  Sender: FDA-Public Use
  Company Number: NVSC2020DE170219

PATIENT
  Age: 78 Year
  Sex: Female
  Weight: 75 kg

DRUGS (4)
  1. BEOVU [Suspect]
     Active Substance: BROLUCIZUMAB-DBLL
     Dosage: 6 MG, UNKNOWN
     Route: 031
     Dates: start: 20200528
  2. BEOVU [Suspect]
     Active Substance: BROLUCIZUMAB-DBLL
     Dosage: 6 MG, UNKNOWN
     Route: 031
     Dates: start: 20200430
  3. BEOVU [Suspect]
     Active Substance: BROLUCIZUMAB-DBLL
     Indication: NEOVASCULAR AGE-RELATED MACULAR DEGENERATION
     Dosage: 6 MG, UNKNOWN
     Route: 031
     Dates: start: 20200402
  4. BEOVU [Suspect]
     Active Substance: BROLUCIZUMAB-DBLL
     Dosage: 6 MG, UNKNOWN
     Route: 031
     Dates: start: 20200604

REACTIONS (42)
  - Iridodonesis [Unknown]
  - Vitreous opacities [Unknown]
  - Intraocular pressure decreased [Not Recovered/Not Resolved]
  - Retinal vasculitis [Unknown]
  - Eye irritation [Recovering/Resolving]
  - Ocular hyperaemia [Unknown]
  - Constipation [Unknown]
  - Blood fibrinogen increased [Unknown]
  - Choroidal detachment [Unknown]
  - Mean cell haemoglobin concentration decreased [Unknown]
  - Retinal artery embolism [Not Recovered/Not Resolved]
  - Eye pain [Recovered/Resolved]
  - Eye haemorrhage [Not Recovered/Not Resolved]
  - Mydriasis [Unknown]
  - Endophthalmitis [Unknown]
  - Hypotension [Unknown]
  - Blood urea increased [Unknown]
  - Macular oedema [Not Recovered/Not Resolved]
  - Red blood cell count decreased [Unknown]
  - Retinal vascular occlusion [Not Recovered/Not Resolved]
  - Retinal artery occlusion [Not Recovered/Not Resolved]
  - Retinal vein occlusion [Unknown]
  - Iritis [Not Recovered/Not Resolved]
  - Corneal disorder [Recovered/Resolved]
  - Arteriovenous malformation [Unknown]
  - Blood potassium decreased [Unknown]
  - Retinal vascular thrombosis [Not Recovered/Not Resolved]
  - Anterior chamber cell [Unknown]
  - Blindness [Unknown]
  - Headache [Unknown]
  - Platelet count increased [Unknown]
  - Haemoglobin decreased [Unknown]
  - Blood creatinine increased [Unknown]
  - Anterior chamber fibrin [Unknown]
  - Amaurosis [Recovered/Resolved with Sequelae]
  - Eye pain [Unknown]
  - Pupillary disorder [Not Recovered/Not Resolved]
  - Conjunctivitis [Unknown]
  - Aortic valve incompetence [Unknown]
  - General physical health deterioration [Unknown]
  - Weight decreased [Unknown]
  - Haematocrit decreased [Unknown]

NARRATIVE: CASE EVENT DATE: 20200608
